FAERS Safety Report 7627147-0 (Version None)
Quarter: 2011Q3

REPORT INFORMATION
  Report Type: 
  Country: None (occurrence: None)
  Receive Date: 20110721
  Receipt Date: 20110711
  Transmission Date: 20111222
  Serious: Yes (Other)
  Sender: FDA-Public Use
  Company Number: BR-GENENTECH-321434

PATIENT
  Sex: Female
  Weight: 68 kg

DRUGS (1)
  1. RITUXIMAB [Suspect]
     Indication: PRODUCT USED FOR UNKNOWN INDICATION
     Dosage: UNK
     Route: 065
     Dates: start: 20101101, end: 20101101

REACTIONS (5)
  - SYNCOPE [None]
  - DYSPEPSIA [None]
  - WEIGHT DECREASED [None]
  - VOMITING [None]
  - ASTHENIA [None]
